FAERS Safety Report 11646463 (Version 2)
Quarter: 2016Q2

REPORT INFORMATION
  Report Type: Spontaneous
  Country: US (occurrence: US)
  Receive Date: 20151020
  Receipt Date: 20160429
  Transmission Date: 20160815
  Serious: No
  Sender: FDA-Public Use
  Company Number: US-ROCHE-1611338

PATIENT
  Age: 80 Year
  Sex: Male
  Weight: 96.25 kg

DRUGS (11)
  1. ESBRIET [Suspect]
     Active Substance: PIRFENIDONE
     Indication: IDIOPATHIC PULMONARY FIBROSIS
     Route: 048
     Dates: start: 20150518
  2. ESBRIET [Suspect]
     Active Substance: PIRFENIDONE
     Route: 048
     Dates: start: 20150609
  3. METFORMIN [Concomitant]
     Active Substance: METFORMIN HYDROCHLORIDE
     Indication: DIABETES MELLITUS
     Route: 065
  4. ADVAIR HFA [Concomitant]
     Active Substance: FLUTICASONE PROPIONATE\SALMETEROL XINAFOATE
     Indication: ASTHMA
     Route: 065
  5. ATENOLOL. [Concomitant]
     Active Substance: ATENOLOL
     Indication: HYPERTENSION
     Route: 065
  6. XANAX [Concomitant]
     Active Substance: ALPRAZOLAM
     Indication: ANXIETY
  7. SINGULAIR [Concomitant]
     Active Substance: MONTELUKAST SODIUM
     Indication: ASTHMA
     Route: 048
  8. ALLEGRA [Concomitant]
     Active Substance: FEXOFENADINE HYDROCHLORIDE
     Indication: HYPERSENSITIVITY
     Route: 065
  9. CRESTOR [Concomitant]
     Active Substance: ROSUVASTATIN CALCIUM
     Indication: BLOOD CHOLESTEROL
     Route: 048
  10. ASA [Concomitant]
     Active Substance: ASPIRIN
  11. ESBRIET [Suspect]
     Active Substance: PIRFENIDONE
     Dosage: 3 CAPSULES, THRICE A DAY WITH FOOD
     Route: 048
     Dates: start: 20150610, end: 201507

REACTIONS (12)
  - Dysgeusia [Unknown]
  - Arthralgia [Unknown]
  - Abdominal pain upper [Unknown]
  - Weight decreased [Unknown]
  - Nausea [Recovered/Resolved]
  - Emotional disorder [Recovered/Resolved]
  - Decreased appetite [Unknown]
  - Mood altered [Unknown]
  - Fatigue [Unknown]
  - Abdominal pain [Unknown]
  - Crying [Unknown]
  - Eating disorder [Unknown]

NARRATIVE: CASE EVENT DATE: 201507
